FAERS Safety Report 7380181-0 (Version None)
Quarter: 2011Q1

REPORT INFORMATION
  Report Type: 
  Country: None (occurrence: None)
  Receive Date: 20110329
  Receipt Date: 20101228
  Transmission Date: 20110831
  Serious: No
  Sender: FDA-Public Use
  Company Number: US-MYLANLABS-2010S1019550

PATIENT
  Age: 61 Year
  Sex: Female
  Weight: 63.96 kg

DRUGS (4)
  1. ESTRADIOL [Suspect]
     Indication: HORMONE REPLACEMENT THERAPY
     Dosage: CHANGED QW
     Route: 062
     Dates: start: 20100901, end: 20100901
  2. LORTADINE [Concomitant]
  3. EVAMIST [Suspect]
     Indication: HORMONE REPLACEMENT THERAPY
     Dosage: 3 SPRAYS QD
     Route: 061
     Dates: start: 20100625, end: 20100903
  4. OMEPRAZOLE [Concomitant]

REACTIONS (5)
  - APPLICATION SITE PRURITUS [None]
  - APPLICATION SITE ERYTHEMA [None]
  - APPLICATION SITE URTICARIA [None]
  - APPLICATION SITE RASH [None]
  - APPLICATION SITE VESICLES [None]
